FAERS Safety Report 10367318 (Version 1)
Quarter: 2014Q3

REPORT INFORMATION
  Report Type: Spontaneous
  Country: JP (occurrence: JP)
  Receive Date: 20140807
  Receipt Date: 20140807
  Transmission Date: 20150326
  Serious: Yes (Other)
  Sender: FDA-Public Use
  Company Number: JP-MERCK-1408JPN001511

PATIENT
  Age: 49 Year
  Sex: Male
  Weight: 71 kg

DRUGS (5)
  1. REBETOL [Suspect]
     Active Substance: RIBAVIRIN
     Indication: CHRONIC HEPATITIS C
     Dosage: 800 MG, 1 IN 1 DAY
     Route: 048
     Dates: start: 20140204
  2. SIMEPREVIR [Suspect]
     Active Substance: SIMEPREVIR
     Indication: CHRONIC HEPATITIS C
     Dosage: 100 MG, 1 IN 1 DAY
     Route: 048
     Dates: start: 20140204, end: 20140429
  3. PEGINTRON [Suspect]
     Active Substance: PEGINTERFERON ALFA-2B
     Dosage: 100 MICROGRAM, 1 IN 1 WEEK
     Route: 058
     Dates: start: 20140408
  4. PEGINTRON [Suspect]
     Active Substance: PEGINTERFERON ALFA-2B
     Indication: CHRONIC HEPATITIS C
     Dosage: 120 MICROGRAM, 1 IN 1 WEEK
     Route: 058
     Dates: start: 20140204, end: 2014
  5. URSO [Concomitant]
     Active Substance: URSODIOL
     Dosage: 600 MG, 1 IN 1 DAY
     Route: 048
     Dates: start: 20140204, end: 2014

REACTIONS (2)
  - White blood cell count decreased [Recovering/Resolving]
  - Weight decreased [Not Recovered/Not Resolved]

NARRATIVE: CASE EVENT DATE: 20140401
